APPROVED DRUG PRODUCT: ZYRTEC HIVES
Active Ingredient: CETIRIZINE HYDROCHLORIDE
Strength: 5MG
Dosage Form/Route: TABLET;ORAL
Application: N019835 | Product #005
Applicant: KENVUE BRANDS LLC
Approved: Nov 16, 2007 | RLD: Yes | RS: No | Type: DISCN